APPROVED DRUG PRODUCT: HEPARIN SODIUM PRESERVATIVE FREE
Active Ingredient: HEPARIN SODIUM
Strength: 1,000 UNITS/ML
Dosage Form/Route: INJECTABLE;INJECTION
Application: A089464 | Product #001
Applicant: DR REDDYS LABORATORIES LTD
Approved: Jun 3, 1986 | RLD: No | RS: No | Type: DISCN